FAERS Safety Report 7625869-9 (Version None)
Quarter: 2011Q3

REPORT INFORMATION
  Report Type: 
  Country: None (occurrence: None)
  Receive Date: 20110721
  Receipt Date: 20110711
  Transmission Date: 20111222
  Serious: Yes (Other)
  Sender: FDA-Public Use
  Company Number: BR-JNJFOC-20110609528

PATIENT
  Age: 41 Year
  Sex: Male
  Weight: 106 kg

DRUGS (2)
  1. STELARA [Suspect]
     Indication: PSORIASIS
     Route: 058
     Dates: start: 20110603, end: 20110706
  2. ISONIAZID [Concomitant]
     Indication: TUBERCULOSIS

REACTIONS (1)
  - DRUG ADMINISTRATION ERROR [None]
